FAERS Safety Report 22141824 (Version 1)
Quarter: 2023Q1

REPORT INFORMATION
  Report Type: Spontaneous
  Country: US (occurrence: US)
  Receive Date: 20230327
  Receipt Date: 20230327
  Transmission Date: 20230418
  Serious: No
  Sender: FDA-Public Use
  Company Number: US-PFIZER INC-PV202300055689

PATIENT
  Age: 78 Year
  Sex: Female

DRUGS (1)
  1. BRAFTOVI [Suspect]
     Active Substance: ENCORAFENIB
     Dosage: UNK

REACTIONS (5)
  - Fungal infection [Unknown]
  - Tongue discolouration [Unknown]
  - Sinusitis [Unknown]
  - Gingival disorder [Unknown]
  - Vulvovaginal pruritus [Unknown]
